FAERS Safety Report 16916006 (Version 1)
Quarter: 2019Q4

REPORT INFORMATION
  Report Type: Spontaneous
  Country: AT (occurrence: AT)
  Receive Date: 20191014
  Receipt Date: 20191014
  Transmission Date: 20200122
  Serious: Yes (Other)
  Sender: FDA-Public Use
  Company Number: AT-GALDERMA-AT19061336

PATIENT
  Age: 34 Year
  Sex: Male

DRUGS (2)
  1. SYMBIOFLOR 1 [Concomitant]
     Active Substance: ENTEROCOCCUS FAECALIS
     Indication: SINUSITIS
     Route: 048
     Dates: start: 20181201, end: 20181205
  2. DOXYCYCLINE. [Suspect]
     Active Substance: DOXYCYCLINE
     Indication: PERIODONTITIS
     Route: 065

REACTIONS (3)
  - Diarrhoea haemorrhagic [Not Recovered/Not Resolved]
  - Product use in unapproved indication [Recovered/Resolved]
  - Constipation [Unknown]

NARRATIVE: CASE EVENT DATE: 20181205
